FAERS Safety Report 9049806 (Version 1)
Quarter: 2013Q1

REPORT INFORMATION
  Report Type: Report from Study
  Country: US (occurrence: US)
  Receive Date: 20130205
  Receipt Date: 20130205
  Transmission Date: 20140127
  Serious: Yes (Other)
  Sender: FDA-Public Use
  Company Number: US-ABBOTT-13P-163-1041986-00

PATIENT
  Age: 65 None
  Sex: Male

DRUGS (2)
  1. NIASPAN (COATED) [Suspect]
     Indication: PRODUCT USED FOR UNKNOWN INDICATION
     Dates: start: 20130122, end: 20130127
  2. NIASPAN (COATED) [Suspect]
     Dates: start: 20130129

REACTIONS (2)
  - Alcoholic seizure [Recovered/Resolved]
  - Joint injury [Unknown]
